FAERS Safety Report 16790616 (Version 6)
Quarter: 2020Q3

REPORT INFORMATION
  Report Type: Spontaneous
  Country: PL (occurrence: PL)
  Receive Date: 20190910
  Receipt Date: 20200715
  Transmission Date: 20201102
  Serious: Yes (Death, Hospitalization, Disabling, Other)
  Sender: FDA-Public Use
  Company Number: PL-MYLANLABS-2019M1083727

PATIENT
  Age: 64 Year
  Sex: Female

DRUGS (22)
  1. OLANZAPINE. [Interacting]
     Active Substance: OLANZAPINE
     Indication: INITIAL INSOMNIA
  2. AMITRIPTYLINE [Interacting]
     Active Substance: AMITRIPTYLINE
     Indication: CANCER PAIN
  3. MORPHINE [Interacting]
     Active Substance: MORPHINE
     Indication: ANALGESIC THERAPY
  4. HEPARIN [Suspect]
     Active Substance: HEPARIN SODIUM
     Indication: CERVIX CARCINOMA
     Dosage: UNK (AT A PROPHYLACTIC DOSE)
  5. AMITRIPTYLINE [Interacting]
     Active Substance: AMITRIPTYLINE
     Indication: PSYCHOTIC DISORDER
  6. MORPHINE [Interacting]
     Active Substance: MORPHINE
     Indication: NEURALGIA
     Dosage: UNK
  7. AMITRIPTYLINE [Interacting]
     Active Substance: AMITRIPTYLINE
     Indication: NEURALGIA
     Dosage: 150 MILLIGRAM, QD (50 MG, 3X/DAY)
  8. FUROSEMIDE. [Interacting]
     Active Substance: FUROSEMIDE
     Indication: CERVIX CARCINOMA
     Dosage: 60 MILLIGRAM, QD (PERIODICALLY, DOSE WAS INCREASED TO 60 MG/D)
  9. POTASSIUM [Suspect]
     Active Substance: POTASSIUM
     Indication: CERVIX CARCINOMA
     Dosage: UNK
  10. HEPARIN [Suspect]
     Active Substance: HEPARIN SODIUM
     Indication: PROPHYLAXIS
  11. HEPARIN [Concomitant]
     Active Substance: HEPARIN SODIUM
     Dosage: UNK (AT A PROPHYLACTIC DOSE)
  12. OLANZAPINE. [Suspect]
     Active Substance: OLANZAPINE
     Indication: SLEEP DISORDER
     Dosage: 10MG, QD (10 MG HS, TAKEN BEFORE GOING TO SLEEP)
  13. FLUCONAZOLE. [Interacting]
     Active Substance: FLUCONAZOLE
     Indication: ORAL FUNGAL INFECTION
     Dosage: UNK
     Route: 048
  14. DALTEPARIN SODIUM [Concomitant]
     Active Substance: DALTEPARIN SODIUM
     Dosage: UNK (HEPARIN LOW MOLECULAR WEIGHT)
  15. OLANZAPINE. [Interacting]
     Active Substance: OLANZAPINE
     Indication: NAUSEA
     Dosage: UNK
  16. OLANZAPINE. [Interacting]
     Active Substance: OLANZAPINE
     Indication: PSYCHOTIC DISORDER
  17. FLUCONAZOLE. [Interacting]
     Active Substance: FLUCONAZOLE
     Dosage: UNK
  18. FUROSEMIDE. [Interacting]
     Active Substance: FUROSEMIDE
     Indication: SWELLING
  19. MORPHINE [Interacting]
     Active Substance: MORPHINE
     Indication: PAIN
     Dosage: 240 MILLIGRAM, QD
     Route: 048
  20. MORPHINE [Interacting]
     Active Substance: MORPHINE
     Indication: CANCER PAIN
  21. FLUCONAZOLE. [Interacting]
     Active Substance: FLUCONAZOLE
     Indication: FUNGAL INFECTION
     Dosage: 200 MILLIGRAM, QD (200 MG DAILY, PERIODICALLY)
     Route: 048
  22. FUROSEMIDE. [Interacting]
     Active Substance: FUROSEMIDE
     Indication: OEDEMA PERIPHERAL
     Dosage: UNK

REACTIONS (16)
  - Pulmonary embolism [Fatal]
  - Cough [Fatal]
  - Cardio-respiratory arrest [Fatal]
  - Cyanosis [Fatal]
  - Nausea [Recovered/Resolved]
  - Chest pain [Fatal]
  - Confusional state [Fatal]
  - Somnolence [Fatal]
  - Oedema peripheral [Fatal]
  - Swelling [Fatal]
  - Haemoptysis [Fatal]
  - Dyspnoea [Fatal]
  - Drug interaction [Fatal]
  - Venous thrombosis [Fatal]
  - Cardiac arrest [Fatal]
  - Pulmonary artery thrombosis [Fatal]
